FAERS Safety Report 7692632-2 (Version None)
Quarter: 2011Q3

REPORT INFORMATION
  Report Type: 
  Country: None (occurrence: None)
  Receive Date: 20110819
  Receipt Date: 20110411
  Transmission Date: 20111222
  Serious: Yes (Other)
  Sender: FDA-Public Use
  Company Number: PL-RANBAXY-2010RR-35717

PATIENT
  Sex: Male

DRUGS (4)
  1. ORTANOL [Concomitant]
     Indication: GASTROOESOPHAGEAL REFLUX DISEASE
     Dosage: 20 MG, UNK
     Dates: start: 20090101
  2. PRAVASTATIN [Suspect]
     Dosage: 20 MG, SINGLE
     Route: 048
     Dates: start: 20100611, end: 20100611
  3. RAMIPRIL [Concomitant]
     Indication: HYPERTENSION
     Dosage: 2.5 MG, UNK
     Dates: start: 20070101
  4. SULFASALAZINE [Concomitant]
     Indication: IRRITABLE BOWEL SYNDROME
     Dosage: 0.5 G, UNK
     Dates: start: 20070101

REACTIONS (6)
  - SWELLING FACE [None]
  - EYELID OEDEMA [None]
  - DYSPNOEA [None]
  - SWOLLEN TONGUE [None]
  - LIP SWELLING [None]
  - URTICARIA [None]
